FAERS Safety Report 25729688 (Version 1)
Quarter: 2025Q3

REPORT INFORMATION
  Report Type: Spontaneous
  Country: MX (occurrence: MX)
  Receive Date: 20250827
  Receipt Date: 20250827
  Transmission Date: 20251020
  Serious: Yes (Death, Other)
  Sender: ASTELLAS
  Company Number: MX-ASTELLAS-2025-AER-046845

PATIENT
  Age: 21 Year
  Sex: Female

DRUGS (2)
  1. PROGRAF [Suspect]
     Active Substance: TACROLIMUS
     Indication: Liver transplant
     Route: 065
  2. PROGRAF [Suspect]
     Active Substance: TACROLIMUS
     Indication: Liver transplant
     Route: 065

REACTIONS (4)
  - Multiple organ dysfunction syndrome [Fatal]
  - Hypoxia [Unknown]
  - Pneumonia [Unknown]
  - Fungaemia [Unknown]
